FAERS Safety Report 4372921-X (Version None)
Quarter: 2004Q2

REPORT INFORMATION
  Report Type: 
  Country: None (occurrence: None)
  Receive Date: 20040603
  Receipt Date: 20040517
  Transmission Date: 20050107
  Serious: Yes (Other)
  Sender: FDA-Public Use
  Company Number: USA040567755

PATIENT
  Age: 57 Year
  Sex: Female

DRUGS (4)
  1. HUMATROPE [Suspect]
     Indication: HYPOPITUITARISM
     Dosage: 0.3 MG DAY
     Dates: start: 20040216, end: 20040501
  2. FOSAMAX [Concomitant]
  3. CALCIUM [Concomitant]
  4. PREMARIN [Concomitant]

REACTIONS (3)
  - BREAST CANCER FEMALE [None]
  - BREAST PAIN [None]
  - THYROID DISORDER [None]
